FAERS Safety Report 7915047-8 (Version None)
Quarter: 2011Q4

REPORT INFORMATION
  Report Type: 
  Country: None (occurrence: None)
  Receive Date: 20111115
  Receipt Date: 20111107
  Transmission Date: 20120403
  Serious: Yes (Hospitalization, Other)
  Sender: FDA-Public Use
  Company Number: JP-BRISTOL-MYERS SQUIBB COMPANY-15462443

PATIENT
  Age: 26 Year
  Sex: Female
  Weight: 48 kg

DRUGS (4)
  1. ABILIFY [Suspect]
     Indication: SCHIZOPHRENIA
     Dosage: DOSE INCR6MG ON 16-24NOV10,REDUC 3MG 14MAR11,13NOV-15NOV10,25NOV10-13MAR11,14MAR-ONG6MG:16-13MAR11.
     Route: 048
     Dates: start: 20101113
  2. ALOSENN [Concomitant]
     Dosage: GRANULES
     Dates: start: 20100112, end: 20110504
  3. PROMAZINE HYDROCHLORIDE [Concomitant]
     Dosage: TABS
     Dates: start: 20101116, end: 20101207
  4. SENNOSIDE [Concomitant]
     Dosage: TABS
     Dates: start: 20110423, end: 20110630

REACTIONS (4)
  - NORMAL NEWBORN [None]
  - EXPOSURE DURING BREAST FEEDING [None]
  - ABORTION THREATENED [None]
  - PREGNANCY [None]
